FAERS Safety Report 13211185 (Version 1)
Quarter: 2017Q1

REPORT INFORMATION
  Report Type: Spontaneous
  Country: ZA (occurrence: ZA)
  Receive Date: 20170210
  Receipt Date: 20170210
  Transmission Date: 20170428
  Serious: Yes (Death)
  Sender: FDA-Public Use
  Company Number: ZA-BAYER-2016-208089

PATIENT
  Age: 54 Year
  Sex: Male

DRUGS (1)
  1. STIVARGA [Suspect]
     Active Substance: REGORAFENIB
     Indication: COLORECTAL CANCER
     Dosage: DAILY DOSE 160 MG
     Route: 048
     Dates: start: 20161020

REACTIONS (7)
  - Blood bilirubin increased [None]
  - Jaundice [None]
  - Epistaxis [None]
  - Death [Fatal]
  - Nausea [None]
  - Hepatic enzyme increased [None]
  - Vomiting [None]

NARRATIVE: CASE EVENT DATE: 201610
